FAERS Safety Report 4730908-9 (Version None)
Quarter: 2005Q3

REPORT INFORMATION
  Report Type: 
  Country: None (occurrence: None)
  Receive Date: 20050719
  Receipt Date: 20050418
  Transmission Date: 20060218
  Serious: Yes (Hospitalization)
  Sender: FDA-Public Use
  Company Number: 2005BI007977

PATIENT
  Age: 52 Year
  Sex: Female
  Weight: 100.6985 kg

DRUGS (1)
  1. AVONEX [Suspect]
     Indication: MULTIPLE SCLEROSIS
     Dosage: 30 UG; QW; IM
     Route: 030
     Dates: start: 19980101

REACTIONS (9)
  - HYPERTENSION [None]
  - MICTURITION URGENCY [None]
  - MUSCLE SPASTICITY [None]
  - NEURALGIA [None]
  - PAIN [None]
  - PAIN IN EXTREMITY [None]
  - POLLAKIURIA [None]
  - READING DISORDER [None]
  - URINARY INCONTINENCE [None]
